FAERS Safety Report 8620168-0 (Version None)
Quarter: 2012Q3

REPORT INFORMATION
  Report Type: 
  Country: None (occurrence: None)
  Receive Date: 20120824
  Receipt Date: 20120814
  Transmission Date: 20120928
  Serious: Yes (Other)
  Sender: FDA-Public Use
  Company Number: JP-ASTRAZENECA-2012SE57765

PATIENT
  Age: 57 Year
  Sex: Female

DRUGS (4)
  1. XYLOCAINE VISCOUS [Suspect]
     Indication: LOCAL ANAESTHESIA
     Dosage: DOSE UNKNOWN
     Route: 049
  2. SCOPOLAMINE [Concomitant]
     Dosage: DOSE UNKNOWN
     Route: 045
  3. XYLOCAINE [Suspect]
     Indication: LOCAL ANAESTHESIA
     Dosage: DOSE UNKNOWN
     Route: 045
  4. GASCON [Concomitant]
     Dosage: DOSE UNKNOWN
     Route: 045

REACTIONS (3)
  - LARYNGEAL OBSTRUCTION [None]
  - CYANOSIS [None]
  - NASAL OBSTRUCTION [None]
